FAERS Safety Report 4613290-7 (Version None)
Quarter: 2005Q1

REPORT INFORMATION
  Report Type: 
  Country: None (occurrence: None)
  Receive Date: 20050315
  Receipt Date: 20040616
  Transmission Date: 20050727
  Serious: Yes (Life-Threatening)
  Sender: FDA-Public Use
  Company Number: 8234

PATIENT
  Sex: Male

DRUGS (1)
  1. ATRACURIUM BESYLATE [Suspect]
     Indication: MUSCLE RELAXANT THERAPY
     Dosage: 1.44 G TOTAL, IV
     Route: 042
     Dates: start: 20040420, end: 20040421

REACTIONS (3)
  - DRUG INEFFECTIVE [None]
  - RESPIRATORY TRACT HAEMORRHAGE [None]
  - TRACHEOSTOMY [None]
